FAERS Safety Report 6625682-5 (Version None)
Quarter: 2010Q1

REPORT INFORMATION
  Report Type: 
  Country: None (occurrence: None)
  Receive Date: 20100223
  Receipt Date: 20100114
  Transmission Date: 20100710
  Serious: No
  Sender: FDA-Public Use
  Company Number: 002701

PATIENT
  Sex: Female
  Weight: 79.3 kg

DRUGS (4)
  1. CIMZIA [Suspect]
     Indication: CROHN'S DISEASE
     Dosage: (400 MG SUBCUTANEOUS)
     Route: 058
     Dates: start: 20090703
  2. LOMOTIL /00034001/ [Concomitant]
  3. ALDACTONE /0006201/ [Concomitant]
  4. MIRENA [Concomitant]

REACTIONS (3)
  - ANAL FUNGAL INFECTION [None]
  - DIABETES MELLITUS [None]
  - RASH [None]
